FAERS Safety Report 25662699 (Version 2)
Quarter: 2025Q3

REPORT INFORMATION
  Report Type: Report from Study
  Country: CA (occurrence: CA)
  Receive Date: 20250811
  Receipt Date: 20250901
  Transmission Date: 20251021
  Serious: Yes (Hospitalization, Other)
  Sender: ABBVIE
  Company Number: CA-ABBVIE-6406199

PATIENT
  Sex: Male

DRUGS (1)
  1. RINVOQ [Suspect]
     Active Substance: UPADACITINIB
     Indication: Crohn^s disease
     Dosage: 1 TABLET ONCE DAILY FOR 12 WEEKS THEN DECREASE TO 30MG ONCE DAILY
     Route: 048

REACTIONS (1)
  - Intestinal resection [Unknown]
